FAERS Safety Report 8090774-3 (Version None)
Quarter: 2012Q1

REPORT INFORMATION
  Report Type: 
  Country: None (occurrence: None)
  Receive Date: 20120124
  Receipt Date: 20120119
  Transmission Date: 20120608
  Serious: Yes (Hospitalization)
  Sender: FDA-Public Use
  Company Number: AE-112-021

PATIENT
  Sex: Female

DRUGS (12)
  1. LIDOCAINE [Suspect]
     Indication: BACK PAIN
     Dosage: 1 PATCH A DAY
     Dates: start: 20080101
  2. LIDOCAINE [Suspect]
     Indication: ARTHRALGIA
     Dosage: 1 PATCH A DAY
     Dates: start: 20080101
  3. LISINOPRIL [Concomitant]
  4. ASPIRIN [Concomitant]
  5. PRAVACHOL [Concomitant]
  6. NAPROXEN (ALEVE) [Concomitant]
  7. CLARITIN [Concomitant]
  8. VITAMIN TAB [Concomitant]
  9. SYNTHROID [Concomitant]
  10. BISOPROLOL [Concomitant]
  11. CALCIUM [Concomitant]
  12. PROTONIX [Concomitant]

REACTIONS (5)
  - KNEE OPERATION [None]
  - TREMOR [None]
  - CORONARY ARTERY OCCLUSION [None]
  - DYSGEUSIA [None]
  - DIZZINESS [None]
